FAERS Safety Report 24657152 (Version 1)
Quarter: 2024Q4

REPORT INFORMATION
  Report Type: Spontaneous
  Country: FR (occurrence: FR)
  Receive Date: 20241125
  Receipt Date: 20241125
  Transmission Date: 20250115
  Serious: Yes (Hospitalization)
  Sender: ROCHE
  Company Number: None

PATIENT
  Age: 62 Year
  Sex: Male
  Weight: 92.1 kg

DRUGS (2)
  1. AVASTIN [Suspect]
     Active Substance: BEVACIZUMAB
     Indication: Hepatocellular carcinoma
     Dosage: 25 MG/ML
     Route: 042
     Dates: start: 20240322, end: 20240729
  2. TECENTRIQ [Concomitant]
     Active Substance: ATEZOLIZUMAB
     Indication: Hepatocellular carcinoma
     Route: 042
     Dates: start: 20240322, end: 20240819

REACTIONS (1)
  - Skin ulcer [Recovering/Resolving]

NARRATIVE: CASE EVENT DATE: 20240801
